FAERS Safety Report 9286301 (Version 1)
Quarter: 2013Q2

REPORT INFORMATION
  Report Type: Spontaneous
  Country: FR (occurrence: FR)
  Receive Date: 20130513
  Receipt Date: 20130513
  Transmission Date: 20140414
  Serious: Yes (Death, Life-Threatening, Hospitalization, Other)
  Sender: FDA-Public Use
  Company Number: FR-PFIZER INC-HQ1646205APR2002

PATIENT
  Age: 96 Year
  Sex: Female

DRUGS (9)
  1. INIPOMP [Suspect]
     Indication: DIAPHRAGMATIC HERNIA
     Dosage: 20 MG, 1X/DAY
     Route: 048
     Dates: start: 2000, end: 200204
  2. INIPOMP [Suspect]
     Indication: GASTRIC ULCER
  3. INIPOMP [Suspect]
     Indication: HIATUS HERNIA
  4. INIPOMP [Suspect]
     Indication: OESOPHAGITIS
  5. ATHYMIL [Suspect]
     Dosage: UNK
  6. LEVOTHYROX [Suspect]
     Indication: SECONDARY HYPOTHYROIDISM
     Dosage: UNK
  7. CALCIUM CARBONATE [Concomitant]
     Dosage: UNK
  8. IRON [Concomitant]
     Dosage: UNK
  9. GAVISCON [Concomitant]
     Dosage: UNK
     Route: 048

REACTIONS (4)
  - Haemorrhage [Fatal]
  - Pancytopenia [Fatal]
  - Myelofibrosis [Fatal]
  - Renal impairment [Not Recovered/Not Resolved]
